FAERS Safety Report 5207378-X (Version None)
Quarter: 2007Q1

REPORT INFORMATION
  Report Type: 
  Country: None (occurrence: None)
  Receive Date: 20070112
  Receipt Date: 20070102
  Transmission Date: 20070707
  Serious: Yes (Death, Other)
  Sender: FDA-Public Use
  Company Number: DE-ELI_LILLY_AND_COMPANY-DE200603005253

PATIENT
  Age: 80 Year
  Sex: Female

DRUGS (14)
  1. ZYPREXA [Suspect]
     Indication: DELIRIUM
     Dosage: 5 MG, DAILY (1/D)
     Route: 048
     Dates: start: 20050310, end: 20050310
  2. ZYPREXA [Suspect]
     Dosage: 7.5 MG, DAILY (1/D)
     Route: 048
     Dates: start: 20050311, end: 20050321
  3. DIPIPERON /GFR/ [Concomitant]
     Dosage: 80 MG, DAILY (1/D)
     Route: 048
     Dates: start: 20050318, end: 20050321
  4. DIAZEPAM [Concomitant]
     Dosage: 5 MG, DAILY (1/D)
     Route: 048
     Dates: start: 20050310, end: 20050310
  5. DIAZEPAM [Concomitant]
     Dosage: 15 MG, DAILY (1/D)
     Route: 048
     Dates: start: 20050311, end: 20050315
  6. DIAZEPAM [Concomitant]
     Dosage: 10 MG, DAILY (1/D)
     Route: 048
     Dates: start: 20050316, end: 20050321
  7. DIAZEPAM [Concomitant]
     Dosage: 5 MG, DAILY (1/D)
     Route: 048
     Dates: start: 20050322
  8. DIURETICS [Concomitant]
     Dosage: 40 MG, DAILY (1/D)
     Route: 048
  9. BISOPROLOL FUMARATE [Concomitant]
     Dosage: 7.5 MG, DAILY (1/D)
     Route: 048
  10. ASPIRIN [Concomitant]
     Dosage: 300 MG, DAILY (1/D)
     Route: 048
     Dates: end: 20050329
  11. LEVOTHYROXINE SODIUM [Concomitant]
     Dosage: 50 UG, DAILY (1/D)
     Route: 048
     Dates: end: 20050329
  12. GLIMEPIRIDE [Concomitant]
     Dosage: 2 MG, DAILY (1/D)
     Route: 048
     Dates: end: 20050329
  13. TRIMETHOPRIM [Concomitant]
     Dosage: 1900 MG, DAILY (1/D)
     Route: 048
     Dates: start: 20050318, end: 20050321
  14. PROTHIPENDYL HYDROCHLORIDE [Concomitant]
     Dosage: 80 MG, DAILY (1/D)
     Route: 048
     Dates: start: 20050318

REACTIONS (9)
  - DEPRESSED LEVEL OF CONSCIOUSNESS [None]
  - DYSARTHRIA [None]
  - DYSPHAGIA [None]
  - EXTRAPYRAMIDAL DISORDER [None]
  - LUNG INFECTION [None]
  - RESPIRATORY DEPRESSION [None]
  - SEDATION [None]
  - SOMNOLENCE [None]
  - URINARY TRACT INFECTION [None]
